FAERS Safety Report 5831575-3 (Version None)
Quarter: 2008Q3

REPORT INFORMATION
  Report Type: 
  Country: None (occurrence: None)
  Receive Date: 20080801
  Receipt Date: 20080722
  Transmission Date: 20090109
  Serious: Yes (Death, Other)
  Sender: FDA-Public Use
  Company Number: US-PFIZER INC-2008061884

PATIENT
  Sex: Male

DRUGS (1)
  1. DILANTIN SUSPENSION [Suspect]
     Indication: CONVULSION

REACTIONS (2)
  - CONVULSION [None]
  - DEATH [None]
